FAERS Safety Report 9102216 (Version 2)
Quarter: 2013Q4

REPORT INFORMATION
  Report Type: Spontaneous
  Country: US (occurrence: US)
  Receive Date: 20130218
  Receipt Date: 20131230
  Transmission Date: 20140711
  Serious: Yes (Hospitalization, Disabling, Other)
  Sender: FDA-Public Use
  Company Number: US-009507513-1302USA006728

PATIENT
  Sex: Female
  Weight: 68.27 kg

DRUGS (3)
  1. NUVARING [Suspect]
     Indication: CONTRACEPTION
     Dosage: UNK
     Route: 067
     Dates: start: 201204, end: 201208
  2. NUVARING [Suspect]
     Dosage: UNK
     Route: 067
     Dates: start: 201005, end: 201008
  3. NUVARING [Suspect]
     Dosage: UNK
     Route: 067
     Dates: start: 201106, end: 201207

REACTIONS (17)
  - Systemic lupus erythematosus [Unknown]
  - Pulmonary embolism [Unknown]
  - Deep vein thrombosis [Unknown]
  - Gonorrhoea [Unknown]
  - Rheumatic disorder [Unknown]
  - Autoimmune haemolytic anaemia [Unknown]
  - Convulsion [Unknown]
  - Migraine [Unknown]
  - Nephropathy [Unknown]
  - Asthma [Unknown]
  - Sleep disorder [Unknown]
  - Maternal exposure before pregnancy [Unknown]
  - Abortion spontaneous [Unknown]
  - Hypertension [Unknown]
  - Drug ineffective [Unknown]
  - Adenoma benign [Unknown]
  - Adenoma benign [Unknown]
